FAERS Safety Report 7093025-1 (Version None)
Quarter: 2010Q4

REPORT INFORMATION
  Report Type: 
  Country: None (occurrence: None)
  Receive Date: 20101110
  Receipt Date: 20101031
  Transmission Date: 20110411
  Serious: Yes (Other)
  Sender: FDA-Public Use
  Company Number: IT-JNJFOC-20101100648

PATIENT
  Age: 72 Year
  Sex: Female

DRUGS (1)
  1. RISPERDAL [Suspect]
     Indication: ACCIDENTAL EXPOSURE
     Route: 048

REACTIONS (3)
  - ACCIDENTAL EXPOSURE [None]
  - HYPOTENSION [None]
  - TACHYCARDIA [None]
